FAERS Safety Report 17015422 (Version 1)
Quarter: 2019Q4

REPORT INFORMATION
  Report Type: Spontaneous
  Country: US (occurrence: US)
  Receive Date: 20191108
  Receipt Date: 20191108
  Transmission Date: 20200122
  Serious: Yes (Other)
  Sender: FDA-Public Use
  Company Number: None

PATIENT
  Age: 49 Year
  Sex: Male
  Weight: 107.8 kg

DRUGS (19)
  1. ACETAMINOPHEN ORAL LIQUID [Concomitant]
     Dates: start: 20191021, end: 20191102
  2. CARBOXYMETHYLCELLULOSE 0.5% OPHTH DROP [Concomitant]
     Dates: start: 20191023, end: 20191102
  3. CLORAZEPATE TABLET [Concomitant]
     Dates: start: 20191023, end: 20191028
  4. INSULIN INFUSION [Concomitant]
     Dates: start: 20191023, end: 20191031
  5. METOPROLOL INJECTION [Concomitant]
     Active Substance: METOPROLOL
     Dates: start: 20191021, end: 20191029
  6. ABELCET [Suspect]
     Active Substance: AMPHOTERICIN B\DIMYRISTOYLPHOSPHATIDYLCHOLINE, DL-\DIMYRISTOYLPHOSPHATIDYLGLYCEROL, DL-
     Indication: CANDIDA SEPSIS
     Route: 042
     Dates: start: 20191024, end: 20191024
  7. DOXYCYCLINE IV [Concomitant]
     Dates: start: 20191021, end: 20191027
  8. HEPARIN INFUSION [Concomitant]
     Dates: start: 20191018, end: 20191031
  9. MEROPENEM IV [Concomitant]
     Dates: start: 20191020, end: 20191027
  10. NICOTINE TRANSDERMAL SYSTEM [Concomitant]
     Active Substance: NICOTINE
     Dates: start: 20191018, end: 20191102
  11. PANTOPRAZOLE INJECTION [Concomitant]
     Active Substance: PANTOPRAZOLE
     Dates: start: 20191021, end: 20191102
  12. PROPOFOL INFUSION [Concomitant]
     Active Substance: PROPOFOL
     Dates: start: 20191024, end: 20191028
  13. FLUCONAZOLE IV [Concomitant]
     Dates: start: 20191021, end: 20191102
  14. DEXTROSE 5% INFUSION [Concomitant]
     Dates: start: 20191024, end: 20191025
  15. MIDODRINE TABLET [Concomitant]
     Dates: start: 20191022, end: 20191102
  16. VANCOMYCIN IV [Concomitant]
     Active Substance: VANCOMYCIN HYDROCHLORIDE
     Dates: start: 20191024, end: 20191027
  17. SODIUM BICARBONATE IN NS INFUSION [Concomitant]
     Dates: start: 20191023, end: 20191024
  18. ASPIRIN CHEWABLE TABLET [Concomitant]
     Dates: start: 20191018, end: 20191102
  19. NYSTATIN SUSPENSION [Concomitant]
     Active Substance: NYSTATIN
     Dates: start: 20191020, end: 20191102

REACTIONS (5)
  - Cardiac arrest [None]
  - Acidosis [None]
  - Fungaemia [None]
  - Seizure [None]
  - Septic shock [None]

NARRATIVE: CASE EVENT DATE: 20191024
